FAERS Safety Report 7978494-4 (Version None)
Quarter: 2011Q4

REPORT INFORMATION
  Report Type: 
  Country: None (occurrence: None)
  Receive Date: 20111214
  Receipt Date: 20111209
  Transmission Date: 20120403
  Serious: Yes (Hospitalization, Other)
  Sender: FDA-Public Use
  Company Number: CA-PFIZER INC-2011301982

PATIENT
  Age: 28 Year
  Sex: Male

DRUGS (3)
  1. VERAPAMIL HCL [Suspect]
     Indication: VASODILATION PROCEDURE
     Dosage: 360 MG, UNK
  2. OMEPRAZOLE [Concomitant]
     Indication: PROPHYLAXIS
     Dosage: 40 MG, UNK
  3. ACETYLSALICYLIC ACID SRT [Suspect]
     Indication: PROPHYLAXIS
     Dosage: 162 MG, UNK

REACTIONS (1)
  - COMPARTMENT SYNDROME [None]
